FAERS Safety Report 9247525 (Version 1)
Quarter: 2013Q2

REPORT INFORMATION
  Report Type: Report from Study
  Country: US (occurrence: US)
  Receive Date: 20130423
  Receipt Date: 20130423
  Transmission Date: 20140414
  Serious: Yes (Other)
  Sender: FDA-Public Use
  Company Number: PHEH2013US006457

PATIENT
  Age: 50 Year
  Sex: Female

DRUGS (4)
  1. GILENYA [Suspect]
     Indication: MULTIPLE SCLEROSIS
     Dosage: 0.5 MG, QD
     Route: 048
     Dates: start: 20130306
  2. CITALOPRAM HBR [Concomitant]
  3. ALEVE [Concomitant]
     Dosage: UNK
  4. ANTIBIOTICS [Concomitant]

REACTIONS (3)
  - Chest discomfort [Unknown]
  - Malaise [Unknown]
  - Nasopharyngitis [Recovered/Resolved]
